FAERS Safety Report 8474156-8 (Version None)
Quarter: 2012Q2

REPORT INFORMATION
  Report Type: 
  Country: None (occurrence: None)
  Receive Date: 20120628
  Receipt Date: 20120622
  Transmission Date: 20120825
  Serious: No
  Sender: FDA-Public Use
  Company Number: US-PFIZER INC-2012152093

PATIENT
  Sex: Male

DRUGS (1)
  1. XALKORI [Suspect]
     Dosage: 200 MG, 1X/DAY
     Dates: start: 20110926

REACTIONS (2)
  - SKIN DISORDER [None]
  - RASH ERYTHEMATOUS [None]
